FAERS Safety Report 5711793-5 (Version None)
Quarter: 2008Q2

REPORT INFORMATION
  Report Type: 
  Country: None (occurrence: None)
  Receive Date: 20080416
  Receipt Date: 20080403
  Transmission Date: 20081010
  Serious: Yes (Other)
  Sender: FDA-Public Use
  Company Number: US020966

PATIENT
  Age: 36 Year
  Sex: Female

DRUGS (15)
  1. MODIODAL [Suspect]
     Indication: NARCOLEPSY
     Dosage: ORAL
     Route: 048
  2. XYREM [Suspect]
     Indication: SLEEP DISORDER
     Dosage: 4.5 G QD; ORAL
     Route: 048
     Dates: start: 20061027, end: 20061109
  3. XYREM [Suspect]
     Indication: SLEEP DISORDER
     Dosage: 6 G QD; ORAL
     Route: 048
     Dates: start: 20061110, end: 20061111
  4. XYREM [Suspect]
     Indication: SLEEP DISORDER
     Dosage: 5.25 G QD; ORAL
     Route: 048
     Dates: start: 20061112, end: 20061113
  5. XYREM [Suspect]
     Indication: SLEEP DISORDER
     Dosage: 6 G QD; ORAL
     Route: 048
     Dates: start: 20061114, end: 20061119
  6. XYREM [Suspect]
     Indication: SLEEP DISORDER
     Dosage: 4.5 G QD; ORAL
     Route: 048
     Dates: start: 20061120, end: 20061122
  7. XYREM [Suspect]
     Indication: SLEEP DISORDER
     Dosage: 4.25 G QD; ORAL
     Route: 048
     Dates: start: 20061123, end: 20061231
  8. XYREM [Suspect]
     Indication: SLEEP DISORDER
     Dosage: 2.5 G BID; ORAL
     Route: 048
     Dates: start: 20070101, end: 20070111
  9. XYREM [Suspect]
     Indication: SLEEP DISORDER
     Dosage: 2.75 G BID; ORAL
     Route: 048
     Dates: start: 20070112, end: 20070124
  10. XYREM [Suspect]
     Indication: SLEEP DISORDER
     Dosage: 3 G BID; ORAL
     Route: 048
     Dates: start: 20070125, end: 20070524
  11. XYREM [Suspect]
     Indication: SLEEP DISORDER
     Dosage: PROGRESSIVELY DECREASING FROM 9 G QD, ORAL
     Route: 048
     Dates: start: 20070524, end: 20070618
  12. XYREM [Suspect]
     Indication: SLEEP DISORDER
     Dosage: 7.5 G QD; ORAL
     Route: 048
     Dates: start: 20070618, end: 20070701
  13. XYREM [Suspect]
     Indication: SLEEP DISORDER
     Dosage: 8 G QD; ORAL
     Route: 048
     Dates: start: 20070701
  14. XYREM [Suspect]
     Indication: SLEEP DISORDER
     Dosage: 7 G QD; ORAL
     Route: 048
     Dates: end: 20080101
  15. XYREM [Suspect]
     Indication: SLEEP DISORDER
     Dosage: 9 G QD; ORAL
     Route: 048
     Dates: start: 20080101

REACTIONS (24)
  - AGGRESSION [None]
  - ARTHRALGIA [None]
  - ASTHENIA [None]
  - BONE PAIN [None]
  - CATAPLEXY [None]
  - CONVERSION DISORDER [None]
  - DEPRESSION [None]
  - ENURESIS [None]
  - FATIGUE [None]
  - HEADACHE [None]
  - MIDDLE INSOMNIA [None]
  - MYALGIA [None]
  - NAUSEA [None]
  - NERVOUSNESS [None]
  - NIGHT SWEATS [None]
  - NIGHTMARE [None]
  - PALPITATIONS [None]
  - PARAESTHESIA [None]
  - SLEEP DISORDER [None]
  - SOMNOLENCE [None]
  - SUFFOCATION FEELING [None]
  - SUICIDAL IDEATION [None]
  - TREMOR [None]
  - VERTIGO [None]
